FAERS Safety Report 10390608 (Version 1)
Quarter: 2014Q3

REPORT INFORMATION
  Report Type: Spontaneous
  Country: JP (occurrence: None)
  Receive Date: 20140814
  Receipt Date: 20140814
  Transmission Date: 20150326
  Serious: Yes (Other)
  Sender: FDA-Public Use
  Company Number: VAL_03296_2014

PATIENT
  Age: 19 Year
  Sex: Female

DRUGS (4)
  1. VERAPAMIL [Concomitant]
     Active Substance: VERAPAMIL HYDROCHLORIDE
  2. PROPANOLOL [Concomitant]
     Active Substance: PROPRANOLOL HYDROCHLORIDE
  3. BISOPROLOL(BISOPROLOL) [Suspect]
     Active Substance: BISOPROLOL
     Indication: LONG QT SYNDROME
     Dosage: (20 MG, PER DAY) (UNKNOWN THERAPY)
  4. METOPROLOL (METOPROLOL - METOPROLOL TARTRATE) [Suspect]
     Active Substance: METOPROLOL
     Indication: LONG QT SYNDROME
     Dosage: UNKNOWN THERAPY DATES

REACTIONS (4)
  - Electrocardiogram T wave abnormal [None]
  - Torsade de pointes [None]
  - Drug ineffective [None]
  - Electrocardiogram QT prolonged [None]
